FAERS Safety Report 16020316 (Version 2)
Quarter: 2019Q1

REPORT INFORMATION
  Report Type: Spontaneous
  Country: GB (occurrence: GB)
  Receive Date: 20190228
  Receipt Date: 20190306
  Transmission Date: 20190418
  Serious: Yes (Other)
  Sender: FDA-Public Use
  Company Number: GB-BEH-2019099756

PATIENT
  Age: 32 Year
  Sex: Female
  Weight: 58 kg

DRUGS (2)
  1. RHOPHYLAC [Suspect]
     Active Substance: HUMAN RHO(D) IMMUNE GLOBULIN
     Indication: RHESUS ANTIBODIES NEGATIVE
     Dosage: 1500 IU, UNK
     Route: 030
     Dates: start: 20180713, end: 20180713
  2. RHOPHYLAC [Suspect]
     Active Substance: HUMAN RHO(D) IMMUNE GLOBULIN
     Indication: RHESUS ANTIBODIES

REACTIONS (2)
  - Foetal hypokinesia [Unknown]
  - Rhesus antibodies positive [Recovered/Resolved]

NARRATIVE: CASE EVENT DATE: 20180719
